FAERS Safety Report 16702272 (Version 3)
Quarter: 2019Q3

REPORT INFORMATION
  Report Type: Spontaneous
  Country: FR (occurrence: FR)
  Receive Date: 20190814
  Receipt Date: 20190826
  Transmission Date: 20191004
  Serious: Yes (Hospitalization)
  Sender: FDA-Public Use
  Company Number: FR-MYLANLABS-2019M1075593

PATIENT
  Age: 54 Year
  Sex: Female
  Weight: 56 kg

DRUGS (18)
  1. TRAMADOL. [Suspect]
     Active Substance: TRAMADOL
     Dosage: 1 DF, BID (MORNING AND EVENING)
     Route: 048
  2. CERNEVIT [Concomitant]
     Active Substance: VITAMINS
     Indication: PRODUCT USED FOR UNKNOWN INDICATION
     Dosage: UNK
  3. AUGMENTIN [Suspect]
     Active Substance: AMOXICILLIN\CLAVULANATE POTASSIUM
     Indication: BACTERAEMIA
     Dosage: 1 DOSAGE FORM, Q8H
     Route: 042
     Dates: start: 20170131, end: 201702
  4. AMIKACIN. [Suspect]
     Active Substance: AMIKACIN
     Indication: BACTERAEMIA
     Dosage: 15 MILLIGRAM/KILOGRAM, QD
     Route: 042
     Dates: start: 20170127, end: 20170130
  5. PANTOPRAZOLE [Suspect]
     Active Substance: PANTOPRAZOLE
     Dosage: 1 DF, QD (EVENING)
     Route: 048
  6. LOVENOX [Concomitant]
     Active Substance: ENOXAPARIN SODIUM
     Indication: THROMBOSIS PROPHYLAXIS
     Dosage: 0.4 MILLILITER, QD
     Route: 058
  7. CUBICIN [Suspect]
     Active Substance: DAPTOMYCIN
     Indication: BACTERAEMIA
     Dosage: 500 MILLIGRAM, QD
     Route: 042
     Dates: start: 20170131, end: 201702
  8. ACUPAN [Suspect]
     Active Substance: NEFOPAM HYDROCHLORIDE
     Indication: PAIN
     Dosage: NON COMMUNIQUEE
     Route: 042
     Dates: start: 20170127
  9. DAFALGAN [Suspect]
     Active Substance: ACETAMINOPHEN
     Indication: PAIN
     Dosage: 1 GRAM, PRN
     Route: 048
  10. MABELIO [Suspect]
     Active Substance: CEFTOBIPROLE
     Indication: BACTERAEMIA
     Dosage: 500 MILLIGRAM, Q8H
     Route: 042
     Dates: start: 20170127, end: 20170130
  11. TRAMADOL. [Suspect]
     Active Substance: TRAMADOL
     Indication: PAIN
     Dosage: 200 MILLIGRAM, QD (1000 MG LP LE MATIN ET 20 MG LE MATIN)
     Route: 048
     Dates: end: 2017
  12. PANTOPRAZOLE [Suspect]
     Active Substance: PANTOPRAZOLE
     Indication: GASTROOESOPHAGEAL REFLUX DISEASE
     Dosage: 40 MILLIGRAM, QD (LE SOIR) 1 DF, QD (EVENING)
     Route: 048
  13. STILNOX [Suspect]
     Active Substance: ZOLPIDEM TARTRATE
     Indication: INSOMNIA
     Dosage: 10 MILLIGRAM, QD (LE SOIR)
     Route: 048
     Dates: end: 2017
  14. OXYNORM [Concomitant]
     Active Substance: OXYCODONE HYDROCHLORIDE
     Indication: PAIN
     Dosage: NON COMMUNIQUEE
     Route: 048
     Dates: start: 20170127
  15. VENLAFAXINE [Suspect]
     Active Substance: VENLAFAXINE HYDROCHLORIDE
     Indication: MAJOR DEPRESSION
     Dosage: 112.5 MILLIGRAM, QD (37.5 MG MORNING AND 75 MG EVENING)
     Route: 048
  16. OLIMEL [Concomitant]
     Active Substance: AMINO ACIDS\DEXTROSE\SOYBEAN OIL
     Indication: PRODUCT USED FOR UNKNOWN INDICATION
     Dosage: UNK
  17. PHOCYTAN [Concomitant]
     Active Substance: .ALPHA.-GLUCOSE-1-PHOSPHATE
     Indication: PRODUCT USED FOR UNKNOWN INDICATION
     Dosage: UNK
     Route: 065
  18. NUTRYELT [Concomitant]
     Active Substance: IRON\MINERALS\POTASSIUM IOD\SODIUM FLUORIDE\SODIUM MOLYBDATE\SODIUM SELENITE\ZINC
     Indication: PRODUCT USED FOR UNKNOWN INDICATION
     Dosage: UNK
     Route: 065

REACTIONS (1)
  - Thrombocytopenia [Recovered/Resolved]

NARRATIVE: CASE EVENT DATE: 20170214
